FAERS Safety Report 15520548 (Version 1)
Quarter: 2018Q4

REPORT INFORMATION
  Report Type: Report from Study
  Country: US (occurrence: US)
  Receive Date: 20181017
  Receipt Date: 20181017
  Transmission Date: 20190205
  Serious: No
  Sender: FDA-Public Use
  Company Number: US-AMGEN-USASL2018111785

PATIENT
  Age: 64 Year
  Sex: Female

DRUGS (2)
  1. REPATHA [Suspect]
     Active Substance: EVOLOCUMAB
     Indication: BLOOD CHOLESTEROL
     Dosage: 420 MG, UNK
     Route: 065
     Dates: start: 201712
  2. REPATHA [Suspect]
     Active Substance: EVOLOCUMAB
     Indication: LOW DENSITY LIPOPROTEIN ABNORMAL

REACTIONS (1)
  - Accidental exposure to product [Unknown]

NARRATIVE: CASE EVENT DATE: 201807
